FAERS Safety Report 8377412-7 (Version None)
Quarter: 2012Q2

REPORT INFORMATION
  Report Type: 
  Country: None (occurrence: None)
  Receive Date: 20120522
  Receipt Date: 20120516
  Transmission Date: 20120825
  Serious: Yes (Other)
  Sender: FDA-Public Use
  Company Number: NL-GENZYME-CLOF-1002149

PATIENT
  Sex: Female
  Weight: 74 kg

DRUGS (3)
  1. IDARUBICIN HCL [Suspect]
     Indication: ACUTE LEUKAEMIA
     Dosage: 24 UNK, UNK
     Route: 042
     Dates: start: 20120228, end: 20120301
  2. CYTARABINE [Suspect]
     Indication: ACUTE LEUKAEMIA
     Dosage: 400 UNK, UNK
     Route: 042
     Dates: start: 20120228, end: 20120305
  3. CLOFARABINE [Suspect]
     Indication: ACUTE LEUKAEMIA
     Dosage: 20 UNK, UNK
     Route: 042
     Dates: start: 20120228, end: 20120303

REACTIONS (1)
  - OSTEONECROSIS OF JAW [None]
